FAERS Safety Report 20891756 (Version 1)
Quarter: 2022Q2

REPORT INFORMATION
  Report Type: Spontaneous
  Country: US (occurrence: US)
  Receive Date: 20220530
  Receipt Date: 20220530
  Transmission Date: 20220721
  Serious: Yes (Other)
  Sender: FDA-Public Use
  Company Number: US-AMGEN-USASP2022087942

PATIENT
  Age: 70 Year
  Sex: Male

DRUGS (1)
  1. REPATHA [Suspect]
     Active Substance: EVOLOCUMAB
     Indication: Blood cholesterol increased
     Dosage: 140 MG/ML, Q2WK
     Route: 058
     Dates: start: 201712

REACTIONS (6)
  - Diabetes mellitus [Unknown]
  - Atrioventricular block [Unknown]
  - Chest pain [Unknown]
  - Low density lipoprotein decreased [Not Recovered/Not Resolved]
  - Product communication issue [Unknown]
  - Product dispensing issue [Unknown]

NARRATIVE: CASE EVENT DATE: 20180103
